FAERS Safety Report 22139786 (Version 1)
Quarter: 2023Q1

REPORT INFORMATION
  Report Type: Spontaneous
  Country: GB (occurrence: GB)
  Receive Date: 20230327
  Receipt Date: 20230327
  Transmission Date: 20230417
  Serious: Yes (Hospitalization, Other)
  Sender: FDA-Public Use
  Company Number: None

PATIENT
  Sex: Female
  Weight: 84.6 kg

DRUGS (1)
  1. RYBELSUS [Suspect]
     Active Substance: SEMAGLUTIDE
     Indication: Weight control
     Dosage: 14 MG, QD
     Route: 048
     Dates: start: 20230128, end: 20230203

REACTIONS (10)
  - Metabolic alkalosis [Recovering/Resolving]
  - Myalgia [Unknown]
  - Muscle spasms [Unknown]
  - Dystonia [Unknown]
  - Muscle rigidity [Unknown]
  - Posturing [Unknown]
  - Vomiting [Unknown]
  - Tachycardia [Unknown]
  - Drug titration error [Unknown]
  - Product use in unapproved indication [Unknown]

NARRATIVE: CASE EVENT DATE: 20230128
